FAERS Safety Report 11720233 (Version 1)
Quarter: 2015Q4

REPORT INFORMATION
  Report Type: Not Available
  Country: AT (occurrence: AT)
  Receive Date: 20151110
  Receipt Date: 20151110
  Transmission Date: 20160304
  Serious: Yes (Life-Threatening, Hospitalization)
  Sender: FDA-Public Use
  Company Number: AT-ANIPHARMA-2015-AT-000001

PATIENT
  Age: 79 Year
  Sex: Male

DRUGS (2)
  1. ASPIRIN. [Suspect]
     Active Substance: ASPIRIN
  2. IBUPROFEN (NON-SPECIFIC) [Suspect]
     Active Substance: IBUPROFEN
     Dosage: 400MG TWICE DAILY

REACTIONS (5)
  - Drug interaction [Unknown]
  - Coagulopathy [Unknown]
  - Vascular stent thrombosis [Unknown]
  - Myocardial infarction [Unknown]
  - Cardiogenic shock [Unknown]
